FAERS Safety Report 9001924 (Version 4)
Quarter: 2013Q1

REPORT INFORMATION
  Report Type: Report from Study
  Country: US (occurrence: US)
  Receive Date: 20130107
  Receipt Date: 20130314
  Transmission Date: 20140127
  Serious: Yes (Other)
  Sender: FDA-Public Use
  Company Number: US-PFIZER INC-2013002655

PATIENT
  Age: 53 Year
  Sex: Male
  Weight: 114 kg

DRUGS (7)
  1. BLINDED CELECOXIB [Suspect]
     Indication: ADENOCARCINOMA OF COLON
     Dosage: 400 MG, 1X/DAY STARTING ON DAY 1 OF CYCLE2 OF FOLFOX,CONTINUED TO 3 YEARS
     Route: 048
     Dates: start: 20120604, end: 20121230
  2. BLINDED NO SUBJECT DRUG [Suspect]
     Indication: ADENOCARCINOMA OF COLON
     Dosage: 400 MG, 1X/DAY STARTING ON DAY 1 OF CYCLE2 OF FOLFOX,CONTINUED TO 3 YEARS
     Route: 048
     Dates: start: 20120604, end: 20121230
  3. BLINDED PLACEBO [Suspect]
     Indication: ADENOCARCINOMA OF COLON
     Dosage: 400 MG, 1X/DAY STARTING ON DAY 1 OF CYCLE2 OF FOLFOX,CONTINUED TO 3 YEARS
     Route: 048
     Dates: start: 20120604, end: 20121230
  4. FLUOROURACIL [Suspect]
     Indication: ADENOCARCINOMA OF COLON
     Dosage: 400 MG/M2, IVP ON DAY 1
     Route: 042
     Dates: start: 20120604, end: 20121116
  5. FLUOROURACIL [Suspect]
     Dosage: 2400 MG/M2, OVER 46-48 HOURS ON DAY 1
     Route: 042
     Dates: start: 20120604, end: 20121116
  6. OXALIPLATIN [Suspect]
     Indication: ADENOCARCINOMA OF COLON
     Dosage: 85 MG/M2, OVER 2 HOURS ON DAY 1
     Route: 042
     Dates: start: 20120604, end: 20121114
  7. LEUCOVORIN CALCIUM [Concomitant]
     Indication: ADENOCARCINOMA OF COLON
     Dosage: 400 MG/M2, OVER 2 HOURS ON DAY 1
     Route: 042
     Dates: start: 20120604, end: 20121114

REACTIONS (1)
  - Cerebral ischaemia [Recovering/Resolving]
